FAERS Safety Report 23085567 (Version 1)
Quarter: 2023Q4

REPORT INFORMATION
  Report Type: Spontaneous
  Country: TR (occurrence: TR)
  Receive Date: 20231019
  Receipt Date: 20231019
  Transmission Date: 20240110
  Serious: No
  Sender: FDA-Public Use
  Company Number: TR-JAZZ PHARMACEUTICALS-2023-TR-019185

PATIENT
  Age: 23 Year
  Sex: Female
  Weight: 51 kg

DRUGS (2)
  1. SODIUM OXYBATE [Suspect]
     Active Substance: SODIUM OXYBATE
     Indication: Narcolepsy
     Dosage: 4.5 GRAM
     Route: 048
     Dates: start: 20220819, end: 202304
  2. SODIUM OXYBATE [Suspect]
     Active Substance: SODIUM OXYBATE
     Indication: Cataplexy

REACTIONS (1)
  - Maternal exposure during pregnancy [Unknown]
